FAERS Safety Report 8571623-3 (Version None)
Quarter: 2012Q3

REPORT INFORMATION
  Report Type: 
  Country: None (occurrence: None)
  Receive Date: 20120724
  Receipt Date: 20120712
  Transmission Date: 20120928
  Serious: Yes (Other)
  Sender: FDA-Public Use
  Company Number: MPS1-1000729

PATIENT
  Age: 22 Year
  Sex: Female

DRUGS (3)
  1. VASOPREN (ENALAPRIL) [Concomitant]
  2. ALDURAZYME [Suspect]
     Indication: MUCOPOLYSACCHARIDOSIS I
     Dosage: 52.2 MG, Q4W, INTRAVENOUS, UNK, INTRAVENOUS
     Route: 042
     Dates: start: 20120601
  3. ALDURAZYME [Suspect]
     Indication: MUCOPOLYSACCHARIDOSIS I
     Dosage: 52.2 MG, Q4W, INTRAVENOUS, UNK, INTRAVENOUS
     Route: 042
     Dates: end: 20010101

REACTIONS (3)
  - MATERNAL EXPOSURE DURING PREGNANCY [None]
  - PREGNANCY [None]
  - ABORTION SPONTANEOUS [None]
